FAERS Safety Report 6804564-X (Version None)
Quarter: 2010Q2

REPORT INFORMATION
  Report Type: 
  Country: None (occurrence: None)
  Receive Date: 20100628
  Receipt Date: 20070411
  Transmission Date: 20101027
  Serious: Yes (Other)
  Sender: FDA-Public Use
  Company Number: US-PFIZER INC-2007028134

PATIENT
  Age: 83 Year
  Sex: Female

DRUGS (1)
  1. GEODON [Suspect]
     Indication: DEMENTIA ALZHEIMER'S TYPE

REACTIONS (1)
  - ELECTROCARDIOGRAM QT PROLONGED [None]
